FAERS Safety Report 9228771 (Version 5)
Quarter: 2013Q4

REPORT INFORMATION
  Report Type: Spontaneous
  Country: US (occurrence: US)
  Receive Date: 20130412
  Receipt Date: 20131015
  Transmission Date: 20140711
  Serious: Yes (Hospitalization, Other)
  Sender: FDA-Public Use
  Company Number: US-009507513-1304USA004651

PATIENT
  Sex: Female
  Weight: 89.34 kg

DRUGS (2)
  1. FOSAMAX [Suspect]
     Indication: OSTEOPOROSIS
     Dosage: 70 MG, QW
     Route: 048
     Dates: start: 20020309
  2. ALENDRONATE SODIUM [Suspect]
     Indication: OSTEOPOROSIS
     Dosage: 70 MG, UNK
     Route: 048
     Dates: start: 20080818, end: 20100820

REACTIONS (38)
  - Femur fracture [Unknown]
  - Intramedullary rod insertion [Unknown]
  - Patella fracture [Unknown]
  - Humerus fracture [Unknown]
  - Myocardial infarction [Unknown]
  - Low turnover osteopathy [Unknown]
  - Vitamin D deficiency [Unknown]
  - Hypertension [Unknown]
  - Hypercholesterolaemia [Unknown]
  - Wrist fracture [Unknown]
  - Coronary artery disease [Unknown]
  - Cystopexy [Unknown]
  - Sciatica [Unknown]
  - Rosacea [Unknown]
  - Blood bilirubin increased [Unknown]
  - Rotator cuff syndrome [Unknown]
  - Sleep apnoea syndrome [Unknown]
  - Treatment noncompliance [Unknown]
  - Coronary arterial stent insertion [Unknown]
  - Adverse event [Unknown]
  - Fall [Unknown]
  - Osteopenia [Unknown]
  - Haemorrhagic anaemia [Recovering/Resolving]
  - Urge incontinence [Unknown]
  - Urinary tract infection [Unknown]
  - Hypertonic bladder [Recovering/Resolving]
  - Hypoxia [Unknown]
  - Atelectasis [Unknown]
  - Klebsiella test positive [Unknown]
  - Seborrhoea [Unknown]
  - Wound [Unknown]
  - Dermatitis contact [Unknown]
  - Spinal deformity [Unknown]
  - Dizziness [Not Recovered/Not Resolved]
  - Drug ineffective [Unknown]
  - Constipation [Unknown]
  - Gastrooesophageal reflux disease [Unknown]
  - Diarrhoea [Unknown]
